FAERS Safety Report 7241047-X (Version None)
Quarter: 2011Q1

REPORT INFORMATION
  Report Type: 
  Country: None (occurrence: None)
  Receive Date: 20110120
  Receipt Date: 20110120
  Transmission Date: 20110831
  Serious: Yes (Hospitalization)
  Sender: FDA-Public Use
  Company Number: None

PATIENT
  Sex: Female
  Weight: 73.4827 kg

DRUGS (1)
  1. CLINDAMYCIN [Suspect]
     Indication: TOOTH EXTRACTION
     Dosage: CAPS TWO STAT CAP ONE Q 6 HOURS ORAL
     Route: 048
     Dates: start: 20100517

REACTIONS (10)
  - DYSPNOEA [None]
  - WHEEZING [None]
  - MUSCLE SPASMS [None]
  - RASH [None]
  - ABDOMINAL DISTENSION [None]
  - DYSURIA [None]
  - PRURITUS [None]
  - DIARRHOEA [None]
  - NAUSEA [None]
  - FLATULENCE [None]
